FAERS Safety Report 5456904-4 (Version None)
Quarter: 2007Q3

REPORT INFORMATION
  Report Type: 
  Country: None (occurrence: None)
  Receive Date: 20070918
  Receipt Date: 20070215
  Transmission Date: 20080115
  Serious: No
  Sender: FDA-Public Use
  Company Number: US-ASTRAZENECA-2006UW26998

PATIENT
  Age: 24 Year
  Sex: Male
  Weight: 72.1 kg

DRUGS (3)
  1. SEROQUEL [Suspect]
     Indication: BIPOLAR DISORDER
     Dosage: 200 MG IN THE AM AND 200 MG HS
     Route: 048
     Dates: start: 20060601
  2. ADDERALL [Concomitant]
  3. ADDERALL 10 [Concomitant]

REACTIONS (7)
  - DRY MOUTH [None]
  - HUNGER [None]
  - INSOMNIA [None]
  - NASAL CONGESTION [None]
  - PHARYNGITIS [None]
  - PYREXIA [None]
  - WEIGHT INCREASED [None]
